FAERS Safety Report 5862139-3 (Version None)
Quarter: 2008Q3

REPORT INFORMATION
  Report Type: 
  Country: None (occurrence: None)
  Receive Date: 20080828
  Receipt Date: 20080117
  Transmission Date: 20090109
  Serious: No
  Sender: FDA-Public Use
  Company Number: A0703873A

PATIENT
  Age: 66 Year
  Sex: Female

DRUGS (6)
  1. ZOVIRAX [Suspect]
     Indication: BUTTERFLY RASH
     Route: 048
     Dates: start: 20020101, end: 20020101
  2. IV FLUIDS [Concomitant]
  3. COUMADIN [Concomitant]
  4. LANOXIN [Concomitant]
  5. ANTIBIOTIC [Concomitant]
  6. CHEMOTHERAPY [Concomitant]

REACTIONS (1)
  - LIP SWELLING [None]
